FAERS Safety Report 4532210-7 (Version None)
Quarter: 2004Q4

REPORT INFORMATION
  Report Type: 
  Country: None (occurrence: None)
  Receive Date: 20041217
  Receipt Date: 20041207
  Transmission Date: 20050328
  Serious: Yes (Other)
  Sender: FDA-Public Use
  Company Number: 2004106425

PATIENT
  Age: 75 Year
  Sex: Female

DRUGS (3)
  1. VIAGRA [Suspect]
     Indication: ILL-DEFINED DISORDER
     Dosage: 75 MG (25 MG, 3 IN 1 D), ORAL
     Route: 048
     Dates: start: 20041109
  2. WARFARIN SODIUM [Suspect]
     Indication: PHLEBOTHROMBOSIS
     Dosage: (4 MG), ORAL
     Route: 048
  3. LEVOTHYROXINE SODIUM [Concomitant]

REACTIONS (2)
  - DRUG INTERACTION [None]
  - INTERNATIONAL NORMALISED RATIO INCREASED [None]
